FAERS Safety Report 9630792 (Version 2)
Quarter: 2013Q4

REPORT INFORMATION
  Report Type: Spontaneous
  Country: FR (occurrence: FR)
  Receive Date: 20131018
  Receipt Date: 20131219
  Transmission Date: 20140711
  Serious: Yes (Other)
  Sender: FDA-Public Use
  Company Number: FR-ASTRAZENECA-2013SE75852

PATIENT
  Age: 17147 Day
  Sex: Male
  Weight: 98 kg

DRUGS (11)
  1. XEROQUEL [Suspect]
     Indication: BIPOLAR DISORDER
     Route: 048
     Dates: start: 20130903
  2. XEROQUEL [Suspect]
     Indication: DEPRESSION
     Route: 048
     Dates: start: 20130903
  3. XEROQUEL [Suspect]
     Indication: BIPOLAR DISORDER
     Route: 048
     Dates: start: 20131010
  4. XEROQUEL [Suspect]
     Indication: DEPRESSION
     Route: 048
     Dates: start: 20131010
  5. DEPAKOTE [Concomitant]
     Route: 048
  6. EFFEXOR [Concomitant]
     Route: 048
  7. LOXAPAC [Concomitant]
     Route: 048
  8. PARKINANE [Concomitant]
     Route: 048
  9. LEXOMIL [Concomitant]
     Route: 048
  10. NOZINAN [Concomitant]
     Indication: ANXIETY
     Route: 048
     Dates: start: 2011
  11. ZOLOFT [Concomitant]
     Indication: DEPRESSION
     Dates: start: 201303

REACTIONS (3)
  - Anxiety [Unknown]
  - Myoclonus [Recovering/Resolving]
  - Sleep disorder due to general medical condition, insomnia type [Unknown]
